FAERS Safety Report 12997509 (Version 1)
Quarter: 2016Q4

REPORT INFORMATION
  Report Type: Spontaneous
  Country: US (occurrence: US)
  Receive Date: 20161202
  Receipt Date: 20161202
  Transmission Date: 20170207
  Serious: No
  Sender: FDA-Public Use
  Company Number: None

PATIENT
  Age: 53 Year
  Sex: Male
  Weight: 110.5 kg

DRUGS (2)
  1. QUETIAPINE. [Suspect]
     Active Substance: QUETIAPINE
     Indication: PERSONALITY DISORDER
     Dates: start: 20140317, end: 20140630
  2. QUETIAPINE. [Suspect]
     Active Substance: QUETIAPINE
     Indication: DEPRESSION
     Dates: start: 20140317, end: 20140630

REACTIONS (2)
  - Hyperglycaemia [None]
  - Glycosylated haemoglobin increased [None]

NARRATIVE: CASE EVENT DATE: 20140708
